FAERS Safety Report 7314207-7 (Version None)
Quarter: 2011Q1

REPORT INFORMATION
  Report Type: 
  Country: None (occurrence: None)
  Receive Date: 20110225
  Receipt Date: 20100628
  Transmission Date: 20110831
  Serious: No
  Sender: FDA-Public Use
  Company Number: US-MYLANLABS-2010S1010201

PATIENT
  Age: 55 Year
  Sex: Male
  Weight: 82.1 kg

DRUGS (8)
  1. AMNESTEEM [Suspect]
     Indication: ACNE CYSTIC
     Route: 048
     Dates: end: 20100504
  2. SIMVASTATIN [Concomitant]
  3. CLARAVIS [Suspect]
     Indication: ACNE CYSTIC
     Route: 048
     Dates: start: 20100202, end: 20100302
  4. ASPIRIN [Concomitant]
  5. AMNESTEEM [Suspect]
     Route: 048
     Dates: start: 20100401, end: 20100504
  6. CLARAVIS [Suspect]
     Route: 048
     Dates: start: 20100302, end: 20100404
  7. LOVAZA [Concomitant]
  8. PRILOSEC [Concomitant]

REACTIONS (2)
  - ARTHRALGIA [None]
  - PAIN IN EXTREMITY [None]
